FAERS Safety Report 9146089 (Version 1)
Quarter: 2013Q1

REPORT INFORMATION
  Report Type: Spontaneous
  Country: US (occurrence: None)
  Receive Date: 20130227
  Receipt Date: 20130227
  Transmission Date: 20140127
  Serious: No
  Sender: FDA-Public Use
  Company Number: None

PATIENT
  Age: 51 Year
  Sex: Female
  Weight: 70.76 kg

DRUGS (3)
  1. PEGASYS [Suspect]
     Indication: HEPATITIS C
     Dosage: 180 MCG SUBCUTANEOUSLY
     Route: 058
     Dates: start: 201209, end: 20130915
  2. PROCRIT [Concomitant]
  3. RIBAVIRIN [Concomitant]

REACTIONS (1)
  - Optic ischaemic neuropathy [None]
